FAERS Safety Report 16990680 (Version 1)
Quarter: 2019Q4

REPORT INFORMATION
  Report Type: Spontaneous
  Country: US (occurrence: US)
  Receive Date: 20191104
  Receipt Date: 20191104
  Transmission Date: 20200122
  Serious: Yes (Other)
  Sender: FDA-Public Use
  Company Number: US-PFIZER INC-2019184648

PATIENT
  Age: 63 Year
  Sex: Female
  Weight: 53.7 kg

DRUGS (1)
  1. CHANTIX [Suspect]
     Active Substance: VARENICLINE TARTRATE
     Indication: SMOKING CESSATION THERAPY
     Dosage: UNK

REACTIONS (5)
  - Pneumothorax [Unknown]
  - Tachyphrenia [Unknown]
  - Logorrhoea [Unknown]
  - Coordination abnormal [Unknown]
  - Mental impairment [Unknown]
